FAERS Safety Report 16127930 (Version 1)
Quarter: 2019Q1

REPORT INFORMATION
  Report Type: Spontaneous
  Country: US (occurrence: US)
  Receive Date: 20190225
  Receipt Date: 20190225
  Transmission Date: 20190418
  Serious: Yes (Life-Threatening)
  Sender: FDA-Public Use
  Company Number: None

PATIENT
  Age: 70 Year
  Sex: Male

DRUGS (1)
  1. HEPARIN/SODIUM CHLORIDE [Suspect]
     Active Substance: HEPARIN SODIUM\SODIUM CHLORIDE
     Route: 042
     Dates: start: 20190208, end: 20190219

REACTIONS (5)
  - Haemoglobin decreased [None]
  - Dyspnoea [None]
  - Retroperitoneal haemorrhage [None]
  - Activated partial thromboplastin time prolonged [None]
  - Hypotension [None]

NARRATIVE: CASE EVENT DATE: 20190219
